FAERS Safety Report 9453620 (Version 1)
Quarter: 2013Q1

REPORT INFORMATION
  Report Type: Not Available
  Country: US (occurrence: US)
  Receive Date: 20120321
  Receipt Date: 20120321
  Transmission Date: 20140127
  Serious: Yes (Hospitalization)
  Sender: FDA-Public Use
  Company Number: US-LUNDBECK-DKLU1074697

PATIENT
  Sex: Male

DRUGS (2)
  1. SABRIL (FOR ORAL SOLUTION) [Suspect]
     Indication: SIMPLE PARTIAL SEIZURES
     Route: 048
     Dates: start: 20111017, end: 20111031
  2. SABRIL (FOR ORAL SOLUTION) [Suspect]
     Route: 048
     Dates: start: 20111101, end: 20111108

REACTIONS (2)
  - Status epilepticus [Not Recovered/Not Resolved]
  - Drug ineffective [Recovered/Resolved]
